FAERS Safety Report 6445333-2 (Version None)
Quarter: 2009Q4

REPORT INFORMATION
  Report Type: 
  Country: None (occurrence: None)
  Receive Date: 20091112
  Receipt Date: 20091103
  Transmission Date: 20100525
  Serious: Yes (Other)
  Sender: FDA-Public Use
  Company Number: 8054005

PATIENT
  Sex: Female

DRUGS (1)
  1. KEPPRA [Suspect]

REACTIONS (4)
  - ABORTION SPONTANEOUS [None]
  - BENIGN HYDATIDIFORM MOLE [None]
  - DRUG EXPOSURE DURING PREGNANCY [None]
  - TWIN PREGNANCY [None]
